FAERS Safety Report 9691758 (Version 2)
Quarter: 2013Q4

REPORT INFORMATION
  Report Type: Spontaneous
  Country: GR (occurrence: GR)
  Receive Date: 20131115
  Receipt Date: 20131115
  Transmission Date: 20140711
  Serious: Yes (Hospitalization)
  Sender: FDA-Public Use
  Company Number: GR-B.I. PHARMACEUTICALS,INC./RIDGEFIELD-2013-BI-35323GB

PATIENT
  Age: 82 Year
  Sex: Female

DRUGS (4)
  1. PRADAXA [Suspect]
     Indication: ATRIAL FIBRILLATION
     Dosage: 220 MG
     Route: 048
     Dates: start: 201108, end: 20131024
  2. RYTMONORM / PROPAFENONE HCL [Concomitant]
     Indication: ARRHYTHMIA
  3. TENORMIN / ATENOLOL [Concomitant]
     Indication: ARRHYTHMIA
     Dates: end: 201310
  4. T4 / LEVOTHYROXINE SODIUM ANHYDROUS [Concomitant]
     Indication: THYROID DISORDER
     Route: 048

REACTIONS (4)
  - Haemorrhagic stroke [Recovered/Resolved]
  - Gait disturbance [Not Recovered/Not Resolved]
  - Brain oedema [Not Recovered/Not Resolved]
  - Respiratory tract infection [Not Recovered/Not Resolved]
